FAERS Safety Report 14295718 (Version 2)
Quarter: 2018Q1

REPORT INFORMATION
  Report Type: Spontaneous
  Country: TR (occurrence: TR)
  Receive Date: 20171218
  Receipt Date: 20180117
  Transmission Date: 20180509
  Serious: Yes (Other)
  Sender: FDA-Public Use
  Company Number: US-ASTRAZENECA-2017SF28394

PATIENT
  Age: 43 Year
  Sex: Male
  Weight: 73 kg

DRUGS (1)
  1. CICLESONIDE [Suspect]
     Active Substance: CICLESONIDE
     Indication: RHINITIS ALLERGIC
     Dosage: 50 MCG/SPRAY, 2 OR 3 SPRAY ONCE A DAY
     Route: 045
     Dates: start: 20170615, end: 20170618

REACTIONS (1)
  - Nasal dryness [Recovered/Resolved]

NARRATIVE: CASE EVENT DATE: 20170615
